FAERS Safety Report 8401758-7 (Version None)
Quarter: 2012Q2

REPORT INFORMATION
  Report Type: 
  Country: None (occurrence: None)
  Receive Date: 20120601
  Receipt Date: 20120524
  Transmission Date: 20120825
  Serious: Yes (Hospitalization)
  Sender: FDA-Public Use
  Company Number: US-BAYER-2012-012863

PATIENT
  Age: 30 Year
  Sex: Female
  Weight: 65.76 kg

DRUGS (12)
  1. DROSPIRENONE AND ETHINYL ESTRADIOL [Suspect]
     Dosage: UNK
     Route: 048
     Dates: start: 20100601, end: 20101001
  2. YAZ [Suspect]
     Indication: CONTRACEPTION
     Dosage: UNK
     Route: 048
     Dates: start: 20080301, end: 20081201
  3. DEXTROSE [Concomitant]
     Dosage: 5 %, UNK
     Route: 042
  4. ZOSYN [Concomitant]
  5. KEFLEX [Concomitant]
  6. COLACE [Concomitant]
  7. YAZ [Suspect]
     Dosage: UNK
     Route: 048
     Dates: start: 20090801, end: 20100501
  8. MORPHINE [Concomitant]
  9. VICODIN [Concomitant]
  10. ACETAMINOPHEN [Concomitant]
  11. SALINE [Concomitant]
     Route: 042
  12. POTASSIUM CHLORIDE [Concomitant]

REACTIONS (4)
  - CHOLECYSTITIS CHRONIC [None]
  - BILE DUCT STONE [None]
  - INJURY [None]
  - CHOLELITHIASIS [None]
